FAERS Safety Report 10664865 (Version 1)
Quarter: 2014Q4

REPORT INFORMATION
  Report Type: Spontaneous
  Country: US (occurrence: None)
  Receive Date: 20141208
  Receipt Date: 20141208
  Transmission Date: 20150529
  Serious: No
  Sender: FDA-Public Use
  Company Number: 2014TUS007697

PATIENT
  Sex: Female

DRUGS (2)
  1. TRAMADOL [Concomitant]
     Active Substance: TRAMADOL
  2. BRINTELLIX [Suspect]
     Active Substance: VORTIOXETINE HYDROBROMIDE
     Indication: MAJOR DEPRESSION
     Route: 048
     Dates: end: 20140817

REACTIONS (2)
  - Pruritus generalised [None]
  - Nausea [None]
